FAERS Safety Report 9813743 (Version 1)
Quarter: 2014Q1

REPORT INFORMATION
  Report Type: Spontaneous
  Country: US (occurrence: None)
  Receive Date: 20140109
  Receipt Date: 20140109
  Transmission Date: 20141002
  Serious: Yes (Hospitalization)
  Sender: FDA-Public Use
  Company Number: None

PATIENT
  Age: 56 Year
  Sex: Male
  Weight: 151 kg

DRUGS (1)
  1. CITALOPRAM 20 MG [Suspect]
     Indication: DEPRESSION
     Dosage: 1 PILL QD ORAL
     Route: 048
     Dates: start: 20131102, end: 20131108

REACTIONS (2)
  - Bradycardia [None]
  - Electrocardiogram QT prolonged [None]
